FAERS Safety Report 5148107-8 (Version None)
Quarter: 2006Q4

REPORT INFORMATION
  Report Type: 
  Country: None (occurrence: None)
  Receive Date: 20061110
  Receipt Date: 20041216
  Transmission Date: 20070319
  Serious: Yes (Hospitalization, Other)
  Sender: FDA-Public Use
  Company Number: US-GLAXOSMITHKLINE-A0537496A

PATIENT
  Age: 60 Year
  Sex: Male
  Weight: 108.6 kg

DRUGS (2)
  1. CONTAC 12-HOUR NON-DROWSY CAPLETS [Suspect]
     Indication: NASOPHARYNGITIS
     Dosage: 1CAPL SINGLE DOSE
     Route: 048
     Dates: start: 20040101, end: 20040101
  2. ASPIRIN [Concomitant]
     Indication: NASOPHARYNGITIS
     Route: 048

REACTIONS (7)
  - ABDOMINAL PAIN UPPER [None]
  - ARTERIOSCLEROSIS [None]
  - DYSPNOEA [None]
  - HYPERHIDROSIS [None]
  - HYPERTENSION [None]
  - HYPOAESTHESIA [None]
  - MYOCARDIAL INFARCTION [None]
